FAERS Safety Report 13832179 (Version 1)
Quarter: 2017Q3

REPORT INFORMATION
  Report Type: Spontaneous
  Country: US (occurrence: US)
  Receive Date: 20170803
  Receipt Date: 20170803
  Transmission Date: 20171127
  Serious: No
  Sender: FDA-Public Use
  Company Number: US-ROCHE-702114

PATIENT
  Age: 64 Year
  Sex: Female
  Weight: 66.8 kg

DRUGS (6)
  1. CALCIUM [Concomitant]
     Active Substance: CALCIUM
     Route: 065
  2. NAPROXEN. [Concomitant]
     Active Substance: NAPROXEN
     Route: 065
  3. VITAMIN D [Concomitant]
     Active Substance: CHOLECALCIFEROL
     Dosage: DRUG REPORTED AS VITAMIN D
     Route: 065
  4. BONIVA [Suspect]
     Active Substance: IBANDRONATE SODIUM
     Indication: OSTEOPENIA
     Route: 048
  5. TRAMADOL. [Concomitant]
     Active Substance: TRAMADOL
     Route: 065
  6. LEVOTHYROXINE. [Concomitant]
     Active Substance: LEVOTHYROXINE
     Route: 065

REACTIONS (5)
  - Abdominal pain upper [Not Recovered/Not Resolved]
  - Influenza like illness [Not Recovered/Not Resolved]
  - Vomiting [Unknown]
  - Pain [Not Recovered/Not Resolved]
  - Decreased appetite [Not Recovered/Not Resolved]

NARRATIVE: CASE EVENT DATE: 20100430
